FAERS Safety Report 15457460 (Version 1)
Quarter: 2018Q4

REPORT INFORMATION
  Report Type: Report from Study
  Country: US (occurrence: US)
  Receive Date: 20181002
  Receipt Date: 20181002
  Transmission Date: 20190204
  Serious: Yes (Other)
  Sender: FDA-Public Use
  Company Number: US-BEH-2018095229

PATIENT
  Age: 29 Year
  Sex: Female

DRUGS (12)
  1. CYTOGAM [Suspect]
     Active Substance: HUMAN CYTOMEGALOVIRUS IMMUNE GLOBULIN
     Dosage: UNK
     Route: 042
  2. BLINDED ALBUMIN 5% [Suspect]
     Active Substance: ALBUMIN HUMAN
     Indication: CYTOMEGALOVIRUS INFECTION
     Dosage: 142.4 ML, QMT
     Route: 042
     Dates: start: 20180404
  3. ALBUMINAR-5 [Suspect]
     Active Substance: ALBUMIN HUMAN
     Dosage: 142.4 ML, QMT
     Route: 042
     Dates: start: 20180621
  4. BLINDED ALBUMIN 5% [Suspect]
     Active Substance: ALBUMIN HUMAN
     Dosage: UNK
     Route: 042
  5. ALBUMINAR-5 [Suspect]
     Active Substance: ALBUMIN HUMAN
     Indication: CYTOMEGALOVIRUS INFECTION
     Dosage: 142.4 ML, QMT
     Route: 042
     Dates: start: 20180404
  6. CYTOGAM [Suspect]
     Active Substance: HUMAN CYTOMEGALOVIRUS IMMUNE GLOBULIN
     Indication: CYTOMEGALOVIRUS INFECTION
     Dosage: 142.4 ML, QMT
     Route: 042
     Dates: start: 20180404
  7. CYTOGAM [Suspect]
     Active Substance: HUMAN CYTOMEGALOVIRUS IMMUNE GLOBULIN
     Dosage: 142.4 ML, QMT
     Route: 042
     Dates: start: 20180621
  8. ALBUMINAR-5 [Suspect]
     Active Substance: ALBUMIN HUMAN
     Dosage: UNK
     Route: 042
  9. BLINDED ALBUMIN 5% [Suspect]
     Active Substance: ALBUMIN HUMAN
     Dosage: 142.4 ML, QMT
     Route: 042
     Dates: start: 20180621
  10. BLINDED ALBUMIN 5% [Suspect]
     Active Substance: ALBUMIN HUMAN
     Dosage: UNK
     Route: 042
  11. CYTOGAM [Suspect]
     Active Substance: HUMAN CYTOMEGALOVIRUS IMMUNE GLOBULIN
     Dosage: UNK
     Route: 042
  12. ALBUMINAR-5 [Suspect]
     Active Substance: ALBUMIN HUMAN
     Dosage: UNK
     Route: 042

REACTIONS (1)
  - Premature delivery [Recovered/Resolved]

NARRATIVE: CASE EVENT DATE: 20180920
